FAERS Safety Report 24304384 (Version 1)
Quarter: 2024Q3

REPORT INFORMATION
  Report Type: Spontaneous
  Country: US (occurrence: None)
  Receive Date: 20240909
  Receipt Date: 20240909
  Transmission Date: 20241016
  Serious: Yes (Other)
  Sender: Public
  Company Number: None

PATIENT
  Age: 41 Year
  Sex: Female
  Weight: 44.0 kg

DRUGS (3)
  1. JORNAY PM EXTENDED-RELEASE [Suspect]
     Active Substance: METHYLPHENIDATE HYDROCHLORIDE
     Indication: Asthenia
     Dosage: FREQUENCY : AT BEDTIME;?
     Route: 048
     Dates: start: 20240731, end: 20240909
  2. JORNAY PM EXTENDED-RELEASE [Suspect]
     Active Substance: METHYLPHENIDATE HYDROCHLORIDE
     Indication: Disturbance in attention
  3. JORNAY PM EXTENDED-RELEASE [Suspect]
     Active Substance: METHYLPHENIDATE HYDROCHLORIDE
     Indication: Disturbance in attention

REACTIONS (6)
  - Tachycardia [None]
  - Raynaud^s phenomenon [None]
  - Lip dry [None]
  - Oral discomfort [None]
  - Body temperature increased [None]
  - Urinary retention [None]

NARRATIVE: CASE EVENT DATE: 20240909
